FAERS Safety Report 14074312 (Version 1)
Quarter: 2017Q4

REPORT INFORMATION
  Report Type: Spontaneous
  Country: BR (occurrence: BR)
  Receive Date: 20171011
  Receipt Date: 20171011
  Transmission Date: 20180321
  Serious: Yes (Life-Threatening, Other)
  Sender: FDA-Public Use
  Company Number: BR-TEVA-813347ROM

PATIENT
  Age: 74 Year
  Sex: Male
  Weight: 65 kg

DRUGS (2)
  1. FAULDLEUCO [Suspect]
     Active Substance: LEUCOVORIN CALCIUM
     Indication: METASTASIS
     Dosage: DOSE PER ADMINISTRATION: 400 MG/M2
     Route: 042
     Dates: start: 20170215
  2. TEVAOXALI [Suspect]
     Active Substance: OXALIPLATIN
     Indication: METASTASIS
     Dosage: DOSE PER ADMINISTRATION: 65 MG/M2
     Route: 042
     Dates: start: 20170215

REACTIONS (1)
  - Cardiac arrest [Recovered/Resolved]

NARRATIVE: CASE EVENT DATE: 20170926
